FAERS Safety Report 6215557-8 (Version None)
Quarter: 2009Q2

REPORT INFORMATION
  Report Type: 
  Country: None (occurrence: None)
  Receive Date: 20090605
  Receipt Date: 20080519
  Transmission Date: 20091009
  Serious: Yes (Other)
  Sender: FDA-Public Use
  Company Number: US-ASTRAZENECA-2008UW07992

PATIENT
  Age: 37 Year
  Sex: Female
  Weight: 114.3 kg

DRUGS (16)
  1. SEROQUEL [Suspect]
     Indication: DEPRESSION
     Dosage: INCLUDING, BUT NOT LIMITED TO 25 MG
     Route: 048
     Dates: start: 20040101, end: 20050401
  2. SEROQUEL [Suspect]
     Indication: BIPOLAR DISORDER
     Dosage: INCLUDING, BUT NOT LIMITED TO 25 MG
     Route: 048
     Dates: start: 20040101, end: 20050401
  3. SEROQUEL [Suspect]
     Route: 048
     Dates: start: 20050112
  4. SEROQUEL [Suspect]
     Route: 048
     Dates: start: 20050112
  5. GEODON [Concomitant]
     Indication: ANGER
     Dates: start: 20060101, end: 20070101
  6. GEODON [Concomitant]
     Route: 048
     Dates: start: 20060308
  7. RISPERDAL [Concomitant]
     Dates: start: 20050101
  8. RISPERDAL [Concomitant]
     Route: 048
     Dates: start: 20050713
  9. ZOLOFT [Concomitant]
     Indication: DEPRESSION
     Dates: start: 20050101
  10. ZOLOFT [Concomitant]
     Route: 048
     Dates: start: 20050103
  11. DEPAKOTE [Concomitant]
     Indication: BIPOLAR II DISORDER
     Route: 048
     Dates: start: 20050808
  12. IBUPROFEN [Concomitant]
     Route: 048
     Dates: start: 20020825
  13. ZOVIA 1/35E-21 [Concomitant]
     Dosage: 1/35 EVERYDAY
     Route: 048
     Dates: start: 20010801
  14. AMBIEN [Concomitant]
     Route: 048
     Dates: start: 20050424
  15. METFORMIN HYDROCHLORIDE [Concomitant]
     Indication: DIABETES MELLITUS
     Route: 048
     Dates: start: 20060222
  16. VITAMIN D [Concomitant]
     Route: 048
     Dates: start: 20050112

REACTIONS (6)
  - BLOOD CHOLESTEROL INCREASED [None]
  - BLOOD GLUCOSE INCREASED [None]
  - DIABETES MELLITUS [None]
  - PALPITATIONS [None]
  - POST-TRAUMATIC STRESS DISORDER [None]
  - TYPE 2 DIABETES MELLITUS [None]
